FAERS Safety Report 10142215 (Version 1)
Quarter: 2014Q2

REPORT INFORMATION
  Report Type: Report from Study
  Country: US (occurrence: US)
  Receive Date: 20140430
  Receipt Date: 20140430
  Transmission Date: 20141212
  Serious: Yes (Life-Threatening, Hospitalization, Other)
  Sender: FDA-Public Use
  Company Number: US-ROCHE-1390006

PATIENT
  Age: 72 Year
  Sex: Female

DRUGS (3)
  1. TRASTUZUMAB [Suspect]
     Indication: BREAST CANCER
     Dosage: LOADING DOSE OF: 4MG/KG?FOLLOWED BY: 2MG/KG, WEEKLY FOR 17 WEEKS?FOLLOWED  BY: 6MG/KG, EVERY 3 WEEKS
     Route: 042
     Dates: start: 20101228, end: 20111208
  2. DOCETAXEL [Suspect]
     Indication: BREAST CANCER
     Route: 042
     Dates: start: 20101228, end: 20110421
  3. CARBOPLATIN [Suspect]
     Indication: BREAST CANCER
     Dosage: DOSE: AUC6
     Route: 042
     Dates: start: 20101228, end: 20110421

REACTIONS (5)
  - Dehydration [Recovered/Resolved]
  - Hyperglycaemia [Recovered/Resolved]
  - Nausea [Recovered/Resolved]
  - Neutropenia [Recovered/Resolved]
  - Deep vein thrombosis [Recovered/Resolved]
